FAERS Safety Report 8463044-9 (Version None)
Quarter: 2012Q2

REPORT INFORMATION
  Report Type: 
  Country: None (occurrence: None)
  Receive Date: 20120625
  Receipt Date: 20100414
  Transmission Date: 20120825
  Serious: Yes (Other)
  Sender: FDA-Public Use
  Company Number: FI-ROCHE-697662

PATIENT
  Sex: Female

DRUGS (1)
  1. XELODA [Suspect]
     Indication: RECTAL CANCER
     Dosage: FREQUENCY:3+3 TABLET (3000MG) PER DAY ON DAYS 1-15, THEN 7 DAY REST
     Route: 048

REACTIONS (1)
  - DEAFNESS UNILATERAL [None]
